FAERS Safety Report 9241931 (Version 2)
Quarter: 2013Q2

REPORT INFORMATION
  Report Type: Spontaneous
  Country: BR (occurrence: BR)
  Receive Date: 20130419
  Receipt Date: 20130515
  Transmission Date: 20140414
  Serious: Yes (Other)
  Sender: FDA-Public Use
  Company Number: PHHY2013BR036078

PATIENT
  Sex: Female
  Weight: 91 kg

DRUGS (8)
  1. TRILEPTAL [Suspect]
     Indication: CONVULSION
     Dosage: UNK UKN, UNK
     Route: 048
  2. LOSARTAN [Concomitant]
     Indication: HYPERTENSION
     Dosage: 2 DF, QD
     Route: 048
  3. ATENOLOL [Concomitant]
     Indication: HYPERTENSION
     Dosage: 2 DF, QD
     Route: 048
  4. PROFLAM [Concomitant]
     Indication: OSTEOARTHRITIS
     Dosage: UNK UKN, UNK
     Route: 062
  5. CILOSTAZOL [Concomitant]
     Indication: BLOOD DISORDER
     Dosage: 2 DF, QD
     Route: 048
  6. AAS INFANT [Concomitant]
     Indication: BLOOD DISORDER
     Dosage: 1 DF, QD
  7. RIVOTRIL [Concomitant]
     Dosage: 2 DF, QD
     Route: 048
  8. OMEPRAZOLE [Concomitant]
     Indication: GASTRIC DISORDER
     Dosage: 1 DF, QD

REACTIONS (11)
  - Osteoarthritis [Not Recovered/Not Resolved]
  - Joint swelling [Not Recovered/Not Resolved]
  - Fibromyalgia [Unknown]
  - Pain [Unknown]
  - Neuropathy peripheral [Recovering/Resolving]
  - Osteoporosis [Not Recovered/Not Resolved]
  - Osteopenia [Not Recovered/Not Resolved]
  - Insomnia [Recovered/Resolved]
  - Blood sodium decreased [Recovered/Resolved]
  - Headache [Recovered/Resolved]
  - Blood cholesterol abnormal [Unknown]
